FAERS Safety Report 6600297-3 (Version None)
Quarter: 2010Q1

REPORT INFORMATION
  Report Type: 
  Country: None (occurrence: None)
  Receive Date: 20100224
  Receipt Date: 20100215
  Transmission Date: 20100710
  Serious: Yes (Disabling)
  Sender: FDA-Public Use
  Company Number: AT-ASTRAZENECA-2010SE01547

PATIENT
  Age: 75 Year
  Sex: Female
  Weight: 62 kg

DRUGS (4)
  1. ARIMIDEX [Suspect]
     Indication: BREAST CANCER
     Route: 048
     Dates: start: 20090501, end: 20100113
  2. ACLASTA [Interacting]
     Dosage: 1X
     Route: 065
     Dates: start: 20091001
  3. CAL D-VITA [Concomitant]
     Indication: OSTEOPOROSIS
     Dosage: 2X1
     Dates: start: 20080101
  4. CONCOR [Concomitant]
     Indication: EXTRASYSTOLES
     Dosage: 1.25-0-0
     Dates: start: 20100101

REACTIONS (6)
  - BONE PAIN [None]
  - COUGH [None]
  - DRUG INTERACTION [None]
  - HEPATIC ENZYME INCREASED [None]
  - MYALGIA [None]
  - ORAL DISCOMFORT [None]
